FAERS Safety Report 8206957-5 (Version None)
Quarter: 2012Q1

REPORT INFORMATION
  Report Type: 
  Country: None (occurrence: None)
  Receive Date: 20120314
  Receipt Date: 20120303
  Transmission Date: 20120608
  Serious: Yes (Other)
  Sender: FDA-Public Use
  Company Number: US-SANOFI-AVENTIS-2012SA014704

PATIENT
  Age: 80 Year
  Sex: Male

DRUGS (5)
  1. METFORMIN HCL [Concomitant]
  2. GLIPIZIDE [Concomitant]
  3. LANTUS [Suspect]
     Dosage: DOSE:45 UNIT(S)
     Route: 058
     Dates: start: 20080101
  4. LANTUS [Suspect]
     Dosage: DOSE:50 UNIT(S)
     Route: 058
  5. SOLOSTAR [Suspect]
     Dates: start: 20080101

REACTIONS (1)
  - CARDIAC FAILURE CONGESTIVE [None]
